FAERS Safety Report 6208862-2 (Version None)
Quarter: 2009Q2

REPORT INFORMATION
  Report Type: 
  Country: None (occurrence: None)
  Receive Date: 20090529
  Receipt Date: 20090521
  Transmission Date: 20091009
  Serious: Yes (Hospitalization)
  Sender: FDA-Public Use
  Company Number: A0786568A

PATIENT
  Sex: Female
  Weight: 62.8 kg

DRUGS (1)
  1. SERETIDE [Suspect]
     Dosage: 1PUFF FOUR TIMES PER DAY
     Dates: start: 20080501

REACTIONS (2)
  - DRUG ADMINISTRATION ERROR [None]
  - NON-CARDIAC CHEST PAIN [None]
